FAERS Safety Report 7142454-6 (Version None)
Quarter: 2010Q4

REPORT INFORMATION
  Report Type: 
  Country: None (occurrence: None)
  Receive Date: 20101207
  Receipt Date: 20101130
  Transmission Date: 20110411
  Serious: Yes (Disabling, Other)
  Sender: FDA-Public Use
  Company Number: US-PFIZER INC-2010150784

PATIENT
  Sex: Female
  Weight: 81.633 kg

DRUGS (8)
  1. XANAX [Suspect]
     Indication: ANXIETY
     Dosage: 0.25 MG, AS NEEDED
  2. CELEBREX [Suspect]
     Dosage: UNK
  3. PREMPRO [Suspect]
     Dosage: UNK
  4. EFFEXOR [Suspect]
     Dosage: UNK
  5. VALIUM [Concomitant]
     Indication: ANXIETY
     Dosage: UNK
  6. OXYCONTIN [Concomitant]
     Indication: PAIN
     Dosage: UNK
  7. VICODIN [Concomitant]
     Indication: PAIN
     Dosage: UNK
  8. VITAMIN D [Concomitant]
     Dosage: UNK

REACTIONS (9)
  - ANXIETY [None]
  - CONVERSION DISORDER [None]
  - CROHN'S DISEASE [None]
  - CRYING [None]
  - DYSPNOEA [None]
  - GAIT DISTURBANCE [None]
  - HYPERTENSION [None]
  - INFLAMMATORY BOWEL DISEASE [None]
  - OESOPHAGEAL DISORDER [None]
